FAERS Safety Report 7977261-5 (Version None)
Quarter: 2011Q4

REPORT INFORMATION
  Report Type: 
  Country: None (occurrence: None)
  Receive Date: 20111213
  Receipt Date: 20111108
  Transmission Date: 20120403
  Serious: No
  Sender: FDA-Public Use
  Company Number: US-AMGEN-USASP2011051192

PATIENT
  Age: 60 Year
  Sex: Female

DRUGS (1)
  1. ENBREL [Suspect]
     Indication: RHEUMATOID ARTHRITIS
     Dosage: 50 MG, QWK
     Dates: start: 20110927

REACTIONS (11)
  - MOUTH HAEMORRHAGE [None]
  - BLOOD URINE PRESENT [None]
  - OEDEMA PERIPHERAL [None]
  - RASH [None]
  - URINARY TRACT INFECTION [None]
  - PRURITUS [None]
  - SKIN MASS [None]
  - ERYTHEMA [None]
  - FEELING HOT [None]
  - MACULE [None]
  - BRONCHITIS [None]
